FAERS Safety Report 8838205 (Version 1)
Quarter: 2012Q4

REPORT INFORMATION
  Report Type: Spontaneous
  Country: US (occurrence: None)
  Receive Date: 20121011
  Receipt Date: 20121011
  Transmission Date: 20130627
  Serious: Yes (Hospitalization)
  Sender: FDA-Public Use
  Company Number: None

PATIENT
  Age: 36 Year
  Sex: Male

DRUGS (2)
  1. VENLAFAXINE [Suspect]
     Indication: DEPRESSION
     Route: 048
     Dates: start: 20121003, end: 20121005
  2. VENLAFAXINE [Suspect]
     Indication: DEPRESSION
     Route: 048

REACTIONS (6)
  - Musculoskeletal stiffness [None]
  - Heart rate increased [None]
  - Nausea [None]
  - Vomiting [None]
  - Clonus [None]
  - Rhabdomyolysis [None]
